FAERS Safety Report 5309119-4 (Version None)
Quarter: 2007Q2

REPORT INFORMATION
  Report Type: 
  Country: None (occurrence: None)
  Receive Date: 20070426
  Receipt Date: 20070420
  Transmission Date: 20071010
  Serious: Yes (Hospitalization)
  Sender: FDA-Public Use
  Company Number: US-GENENTECH-240315

PATIENT
  Sex: Male

DRUGS (1)
  1. RANIBIZUMAB [Suspect]
     Indication: CHOROIDAL NEOVASCULARISATION
     Dosage: UNK, 1/MONTH
     Route: 031
     Dates: start: 20060718

REACTIONS (8)
  - CONFUSIONAL STATE [None]
  - ESCHERICHIA SEPSIS [None]
  - HAEMORRHAGE [None]
  - LACERATION [None]
  - MYOCARDIAL INFARCTION [None]
  - NAUSEA [None]
  - RENAL FAILURE [None]
  - RESPIRATORY DISTRESS [None]
